FAERS Safety Report 12709034 (Version 1)
Quarter: 2016Q3

REPORT INFORMATION
  Report Type: Spontaneous
  Country: US (occurrence: US)
  Receive Date: 20160901
  Receipt Date: 20160901
  Transmission Date: 20161109
  Serious: No
  Sender: FDA-Public Use
  Company Number: US-JAZZ-2016-US-008572

PATIENT
  Sex: Female

DRUGS (27)
  1. GRALISE ER [Concomitant]
  2. MACROBID [Concomitant]
     Active Substance: NITROFURANTOIN\NITROFURANTOIN MONOHYDRATE
  3. ADDERALL [Concomitant]
     Active Substance: AMPHETAMINE ASPARTATE\AMPHETAMINE SULFATE\DEXTROAMPHETAMINE SACCHARATE\DEXTROAMPHETAMINE SULFATE
  4. XYREM [Suspect]
     Active Substance: SODIUM OXYBATE
     Indication: NARCOLEPSY
     Dosage: 2.25 G, BID
     Route: 048
     Dates: start: 201602, end: 201602
  5. OXYCONTIN [Concomitant]
     Active Substance: OXYCODONE HYDROCHLORIDE
  6. VITAMIN D [Concomitant]
     Active Substance: CHOLECALCIFEROL
  7. BIOTIN [Concomitant]
     Active Substance: BIOTIN
  8. CLARITIN [Concomitant]
     Active Substance: LORATADINE
  9. CLOBETASOL [Concomitant]
     Active Substance: CLOBETASOL
  10. TRIAMCINOLONE [Concomitant]
     Active Substance: TRIAMCINOLONE
  11. TROPICAMIDE. [Concomitant]
     Active Substance: TROPICAMIDE
  12. XYREM [Suspect]
     Active Substance: SODIUM OXYBATE
     Indication: CATAPLEXY
     Dosage: DOSE ADJUSTMENTS
     Route: 048
     Dates: start: 2016, end: 2016
  13. OXYCODONE HCL IR [Concomitant]
  14. CLINDAMYCIN PHOSPHATE. [Concomitant]
     Active Substance: CLINDAMYCIN PHOSPHATE
  15. LIDOCAINE. [Concomitant]
     Active Substance: LIDOCAINE
  16. NITRO-BID [Concomitant]
     Active Substance: NITROGLYCERIN
  17. XANAX [Concomitant]
     Active Substance: ALPRAZOLAM
  18. ARTIFICIAL TEARS [Concomitant]
     Active Substance: GLYCERIN\HYPROMELLOSES\POLYETHYLENE GLYCOL 400
  19. NEURONTIN [Concomitant]
     Active Substance: GABAPENTIN
  20. SALINE MIST [Concomitant]
     Active Substance: SODIUM CHLORIDE
  21. VITAMIN B2 [Concomitant]
     Active Substance: RIBOFLAVIN
  22. XYREM [Suspect]
     Active Substance: SODIUM OXYBATE
     Dosage: 4.5 G, BID
     Route: 048
     Dates: start: 201603
  23. XYZAL [Concomitant]
     Active Substance: LEVOCETIRIZINE DIHYDROCHLORIDE
  24. MAGNESIUM OXIDE. [Concomitant]
     Active Substance: MAGNESIUM OXIDE
  25. NASONEX [Concomitant]
     Active Substance: MOMETASONE FUROATE
  26. LEVETIRACETAM. [Concomitant]
     Active Substance: LEVETIRACETAM
  27. COENZYME Q10 [Concomitant]
     Active Substance: UBIDECARENONE

REACTIONS (1)
  - Pain [Unknown]
